FAERS Safety Report 9131031 (Version 2)
Quarter: 2013Q1

REPORT INFORMATION
  Report Type: Spontaneous
  Country: RU (occurrence: RU)
  Receive Date: 20130301
  Receipt Date: 20130318
  Transmission Date: 20140127
  Serious: Yes (Other)
  Sender: FDA-Public Use
  Company Number: RU-BRISTOL-MYERS SQUIBB COMPANY-17406265

PATIENT
  Age: 32 Year
  Sex: Female

DRUGS (6)
  1. BARACLUDE TABS 1.0 MG [Suspect]
     Indication: HIV INFECTION
     Dosage: 16MAR2012
     Dates: start: 20120206
  2. STOCRIN [Suspect]
  3. ZIDOVUDINE [Suspect]
  4. ABACAVIR [Concomitant]
  5. EPIVIR [Concomitant]
  6. INTELENCE [Concomitant]

REACTIONS (5)
  - Suicidal ideation [Unknown]
  - Anaemia [Unknown]
  - Headache [Recovered/Resolved]
  - Asthenia [Unknown]
  - Treatment noncompliance [Unknown]
